FAERS Safety Report 17236175 (Version 1)
Quarter: 2020Q1

REPORT INFORMATION
  Report Type: Report from Study
  Country: None (occurrence: TW)
  Receive Date: 20200106
  Receipt Date: 20200106
  Transmission Date: 20200409
  Serious: Yes (Hospitalization)
  Sender: FDA-Public Use
  Company Number: TW-ABBVIE-19K-153-3179992-00

PATIENT
  Age: 84 Year
  Sex: Female
  Weight: 47.7 kg

DRUGS (9)
  1. IMBRUVICA [Suspect]
     Active Substance: IBRUTINIB
     Route: 048
  2. KENTAMIN [Concomitant]
     Indication: HYPOAESTHESIA
     Route: 048
     Dates: start: 2019
  3. MAGNESIUM OXIDE. [Concomitant]
     Active Substance: MAGNESIUM OXIDE
     Indication: FLATULENCE
     Route: 048
     Dates: start: 2019
  4. THROUGH [Concomitant]
     Indication: CONSTIPATION
     Dates: start: 2019
  5. NEXIUM [Concomitant]
     Active Substance: ESOMEPRAZOLE MAGNESIUM
     Indication: FLATULENCE
     Dosage: 1 TAB/QDAC
     Route: 048
     Dates: start: 2019
  6. GASLAN [Concomitant]
     Indication: FLATULENCE
     Dosage: 40MG
     Route: 048
     Dates: start: 2019
  7. SENNOSIDE A+B [Concomitant]
     Active Substance: SENNOSIDES A AND B
     Indication: CONSTIPATION
     Route: 048
     Dates: start: 2019
  8. IMBRUVICA [Suspect]
     Active Substance: IBRUTINIB
     Indication: MANTLE CELL LYMPHOMA
     Route: 048
     Dates: start: 20180111, end: 20180206
  9. IMBRUVICA [Suspect]
     Active Substance: IBRUTINIB
     Route: 048
     Dates: start: 20180220, end: 20191111

REACTIONS (7)
  - Nausea [Not Recovered/Not Resolved]
  - Syncope [Recovered/Resolved]
  - Skin lesion [Not Recovered/Not Resolved]
  - Blood sodium decreased [Recovered/Resolved]
  - Incorrect dose administered [Unknown]
  - Off label use [Unknown]
  - Throat lesion [Not Recovered/Not Resolved]

NARRATIVE: CASE EVENT DATE: 20180111
